FAERS Safety Report 19856675 (Version 3)
Quarter: 2021Q4

REPORT INFORMATION
  Report Type: Spontaneous
  Country: US (occurrence: US)
  Receive Date: 20210920
  Receipt Date: 20211118
  Transmission Date: 20220303
  Serious: Yes (Hospitalization)
  Sender: FDA-Public Use
  Company Number: US-BAUSCH-BL-2021-031908

PATIENT
  Sex: Female

DRUGS (5)
  1. SYPRINE [Suspect]
     Active Substance: TRIENTINE HYDROCHLORIDE
     Indication: Hepato-lenticular degeneration
     Dosage: STARTED ON 11 YEARS AGO
     Route: 048
     Dates: start: 2010
  2. HALOPERIDOL [Concomitant]
     Active Substance: HALOPERIDOL
     Indication: Hepato-lenticular degeneration
  3. OLANZAPINE [Concomitant]
     Active Substance: OLANZAPINE
     Indication: Hepato-lenticular degeneration
  4. FLUNIL [Concomitant]
     Indication: Hepato-lenticular degeneration
  5. HALOPERIDOL [Concomitant]
     Active Substance: HALOPERIDOL
     Indication: Product used for unknown indication

REACTIONS (5)
  - Hepato-lenticular degeneration [Not Recovered/Not Resolved]
  - Condition aggravated [Not Recovered/Not Resolved]
  - Drug ineffective [Unknown]
  - Product temperature excursion issue [Unknown]
  - Treatment noncompliance [Unknown]

NARRATIVE: CASE EVENT DATE: 20210601
